FAERS Safety Report 8929103 (Version 1)
Quarter: 2012Q4

REPORT INFORMATION
  Report Type: 
  Country: US (occurrence: US)
  Receive Date: 20121128
  Receipt Date: 20121128
  Transmission Date: 20130627
  Serious: No
  Sender: FDA-Public Use
  Company Number: US-BIOGENIDEC-2012BI054196

PATIENT
  Age: 64 Year
  Sex: Female
  Weight: 83 kg

DRUGS (6)
  1. AVONEX [Suspect]
     Indication: PRODUCT USED FOR UNKNOWN INDICATION
     Route: 030
  2. VENLAFAXINE [Concomitant]
     Indication: DEPRESSION
     Route: 048
  3. LEVOTHYROXINE [Concomitant]
     Indication: HYPOTHYROIDISM
  4. ROZEREM [Concomitant]
  5. VITAMIN D [Concomitant]
  6. VITAMIN K [Concomitant]

REACTIONS (6)
  - Tremor [Unknown]
  - Bedridden [Unknown]
  - Mental impairment [Unknown]
  - Weight increased [Unknown]
  - Palpitations [Unknown]
  - Depression [Unknown]
